FAERS Safety Report 20633958 (Version 2)
Quarter: 2022Q3

REPORT INFORMATION
  Report Type: Spontaneous
  Country: US (occurrence: US)
  Receive Date: 20220324
  Receipt Date: 20220809
  Transmission Date: 20221027
  Serious: Yes (Other)
  Sender: FDA-Public Use
  Company Number: US-JNJFOC-20220343267

PATIENT
  Age: 77 Year
  Sex: Female

DRUGS (2)
  1. OPSUMIT [Suspect]
     Active Substance: MACITENTAN
     Indication: Product used for unknown indication
     Route: 048
     Dates: start: 20211213
  2. CHOLESTYRAMINE [Concomitant]
     Active Substance: CHOLESTYRAMINE

REACTIONS (3)
  - Pleural effusion [Unknown]
  - Cardiac failure congestive [Unknown]
  - Red blood cell count decreased [Unknown]
